FAERS Safety Report 8763209 (Version 2)
Quarter: 2012Q4

REPORT INFORMATION
  Report Type: 
  Country: NL (occurrence: NL)
  Receive Date: 20120831
  Receipt Date: 20120831
  Transmission Date: 20130627
  Serious: Yes (Hospitalization)
  Sender: FDA-Public Use
  Company Number: NL-SANOFI-AVENTIS-2012SA022140

PATIENT
  Age: 74 Year
  Sex: Female

DRUGS (14)
  1. CORDARONE [Suspect]
     Indication: DRUG USE FOR UNKNOWN INDICATION
     Route: 048
     Dates: start: 20101201, end: 20101207
  2. APIDRA SOLOSTAR [Suspect]
     Indication: DIABETES
     Route: 058
  3. LANTUS [Suspect]
     Indication: DIABETES
     Route: 058
  4. SOTALOL [Interacting]
     Indication: DRUG USE FOR UNKNOWN INDICATION
     Route: 048
     Dates: start: 20050101
  5. LANOXIN [Concomitant]
     Route: 048
  6. ENALAPRIL [Concomitant]
     Indication: BLOOD PRESSURE
     Route: 048
  7. METHOTREXAT [Concomitant]
     Route: 048
  8. FOLIC ACID [Concomitant]
     Route: 048
  9. BUMETANIDE [Concomitant]
     Route: 048
  10. PREDNISOLON [Concomitant]
     Route: 048
  11. ACENOCOUMAROL [Concomitant]
     Dosage: INR
  12. ALLOPURINOL [Concomitant]
     Route: 048
  13. OXAZEPAM [Concomitant]
     Route: 048
  14. TEMAZEPAM [Concomitant]
     Route: 048

REACTIONS (3)
  - Arrhythmia [Recovered/Resolved]
  - Condition aggravated [Recovered/Resolved]
  - Off label use [Unknown]
